FAERS Safety Report 26170612 (Version 2)
Quarter: 2025Q4

REPORT INFORMATION
  Report Type: Report from Study
  Country: JP (occurrence: JP)
  Receive Date: 20251217
  Receipt Date: 20251222
  Transmission Date: 20260117
  Serious: Yes (Other)
  Sender: PFIZER
  Company Number: JP-PFIZER INC-PV202500146011

PATIENT

DRUGS (1)
  1. MEROPENEM [Suspect]
     Active Substance: MEROPENEM
     Indication: Abdominal infection
     Dosage: UNK
     Route: 041

REACTIONS (5)
  - Renal impairment [Unknown]
  - Hepatic function abnormal [Unknown]
  - Rash [Unknown]
  - Diarrhoea [Unknown]
  - Full blood count decreased [Unknown]
